FAERS Safety Report 10282082 (Version 1)
Quarter: 2014Q3

REPORT INFORMATION
  Report Type: Spontaneous
  Country: JP (occurrence: JP)
  Receive Date: 20140707
  Receipt Date: 20140707
  Transmission Date: 20150326
  Serious: Yes (Hospitalization)
  Sender: FDA-Public Use
  Company Number: JP-GLAXOSMITHKLINE-B1010818A

PATIENT
  Age: 78 Year
  Sex: Male

DRUGS (1)
  1. ACYCLOVIR. [Suspect]
     Active Substance: ACYCLOVIR
     Indication: HERPES ZOSTER
     Dosage: 750MG PER DAY
     Route: 042

REACTIONS (7)
  - Scab [Unknown]
  - Blister [Unknown]
  - Skin necrosis [Unknown]
  - Erythema multiforme [Recovering/Resolving]
  - Drug eruption [Recovering/Resolving]
  - Skin lesion [Unknown]
  - Biopsy skin abnormal [Unknown]
